FAERS Safety Report 7726837-9 (Version None)
Quarter: 2011Q3

REPORT INFORMATION
  Report Type: 
  Country: None (occurrence: None)
  Receive Date: 20110902
  Receipt Date: 20110829
  Transmission Date: 20111222
  Serious: Yes (Hospitalization)
  Sender: FDA-Public Use
  Company Number: DE-VIIV HEALTHCARE LIMITED-D0072540A

PATIENT
  Sex: Female
  Weight: 75 kg

DRUGS (2)
  1. RETROVIR [Suspect]
     Dosage: 500MG PER DAY
     Route: 048
     Dates: start: 20110829, end: 20110829
  2. KALETRA [Suspect]
     Dosage: 4400MG PER DAY
     Route: 048
     Dates: start: 20110829, end: 20110829

REACTIONS (2)
  - CONVULSION [None]
  - ACCIDENTAL EXPOSURE [None]
